APPROVED DRUG PRODUCT: LEVAQUIN
Active Ingredient: LEVOFLOXACIN
Strength: 250MG/10ML
Dosage Form/Route: SOLUTION;ORAL
Application: N021721 | Product #001
Applicant: JANSSEN PHARMACEUTICALS INC
Approved: Oct 21, 2004 | RLD: Yes | RS: No | Type: DISCN